FAERS Safety Report 17510494 (Version 2)
Quarter: 2020Q2

REPORT INFORMATION
  Report Type: Spontaneous
  Country: US (occurrence: US)
  Receive Date: 20200306
  Receipt Date: 20200519
  Transmission Date: 20200713
  Serious: Yes (Death, Hospitalization)
  Sender: FDA-Public Use
  Company Number: US-PFIZER INC-2020032276

PATIENT
  Age: 82 Year
  Sex: Male
  Weight: 72.56 kg

DRUGS (13)
  1. PEPCID [Concomitant]
     Active Substance: FAMOTIDINE
     Dosage: UNK
  2. ELIQUIS [Concomitant]
     Active Substance: APIXABAN
  3. VYNDAMAX [Suspect]
     Active Substance: TAFAMIDIS
     Indication: AMYLOIDOSIS
     Dosage: 61 MG, 1X/DAY (EACH EVENING)
     Route: 048
     Dates: end: 20200410
  4. LEVOTHYROXINE SODIUM. [Concomitant]
     Active Substance: LEVOTHYROXINE SODIUM
     Indication: THYROID DISORDER
     Dosage: UNK
  5. PROSCAR [Concomitant]
     Active Substance: FINASTERIDE
     Indication: PROSTATIC DISORDER
     Dosage: UNK
  6. ZITHROMAX [Concomitant]
     Active Substance: AZITHROMYCIN DIHYDRATE
     Dosage: 500 MG, 1X/DAY, (EVERY 24 HOURS)
     Route: 042
  7. VYNDAMAX [Suspect]
     Active Substance: TAFAMIDIS
     Indication: AMYLOIDOSIS
  8. VYNDAMAX [Suspect]
     Active Substance: TAFAMIDIS
     Indication: CARDIAC HYPERTROPHY
  9. VANCOMYCIN [Concomitant]
     Active Substance: VANCOMYCIN
     Dosage: 1 G, 1X/DAY, (EVERY 24 HOURS)
     Route: 042
  10. MERREM [Concomitant]
     Active Substance: MEROPENEM
     Dosage: 1 G, 2X/DAY, (EVERY 12 HOURS)
     Route: 042
  11. SPIROLACTON [Concomitant]
     Dosage: UNK (1.5)
  12. TOLAZAMIDE. [Concomitant]
     Active Substance: TOLAZAMIDE
     Indication: DIURETIC THERAPY
     Dosage: UNK
  13. VITAMIN C [Concomitant]
     Active Substance: ASCORBIC ACID
     Dosage: UNK

REACTIONS (2)
  - Pyrexia [Recovering/Resolving]
  - Death [Fatal]

NARRATIVE: CASE EVENT DATE: 20200226
